FAERS Safety Report 5022167-7 (Version None)
Quarter: 2006Q2

REPORT INFORMATION
  Report Type: 
  Country: None (occurrence: None)
  Receive Date: 20060609
  Receipt Date: 20060523
  Transmission Date: 20061013
  Serious: Yes (Other)
  Sender: FDA-Public Use
  Company Number: 2006UW10049

PATIENT
  Age: 66 Year
  Sex: Female
  Weight: 47.2 kg

DRUGS (3)
  1. PULMICORT [Suspect]
     Indication: ASTHMA
     Route: 055
  2. PULMICORT [Suspect]
     Route: 055
  3. AZMACORT [Concomitant]
     Indication: ASTHMA

REACTIONS (4)
  - CATARACT [None]
  - GLAUCOMA [None]
  - MACULAR DEGENERATION [None]
  - MUSCULAR WEAKNESS [None]
